FAERS Safety Report 4763637-6 (Version None)
Quarter: 2005Q3

REPORT INFORMATION
  Report Type: 
  Country: None (occurrence: None)
  Receive Date: 20050901
  Receipt Date: 20050518
  Transmission Date: 20060218
  Serious: No
  Sender: FDA-Public Use
  Company Number: 200510212BWH

PATIENT
  Age: 56 Year
  Sex: Male
  Weight: 88.4514 kg

DRUGS (2)
  1. LEVITRA [Suspect]
     Dosage: ORAL
     Route: 048
  2. ALTACE [Concomitant]

REACTIONS (1)
  - ERECTILE DYSFUNCTION [None]
